FAERS Safety Report 5746740-3 (Version None)
Quarter: 2008Q2

REPORT INFORMATION
  Report Type: 
  Country: None (occurrence: None)
  Receive Date: 20080522
  Receipt Date: 20080515
  Transmission Date: 20081010
  Serious: Yes (Other)
  Sender: FDA-Public Use
  Company Number: US-PFIZER INC-2008033186

PATIENT
  Sex: Female
  Weight: 72.6 kg

DRUGS (3)
  1. CHANTIX [Suspect]
     Indication: SMOKING CESSATION THERAPY
     Dates: start: 20080201, end: 20080401
  2. CAFFEINE [Suspect]
  3. LEXAPRO [Concomitant]

REACTIONS (3)
  - NAUSEA [None]
  - SCOTOMA [None]
  - VISUAL ACUITY REDUCED [None]
